FAERS Safety Report 5469286-9 (Version None)
Quarter: 2007Q3

REPORT INFORMATION
  Report Type: 
  Country: None (occurrence: None)
  Receive Date: 20070924
  Receipt Date: 20070912
  Transmission Date: 20080115
  Serious: Yes (Other)
  Sender: FDA-Public Use
  Company Number: ES-1164092

PATIENT
  Age: 64 Year
  Sex: Male

DRUGS (5)
  1. OFTACILOX   (CIPROFLOXACIN HYDROCHLORIDE) [Suspect]
     Indication: EYE INFECTION
     Dosage: 6 GTT DAILY OPHTHALMIC
     Route: 047
     Dates: start: 20070621, end: 20070622
  2. COAPROVEL            (KARVEA HCT) [Concomitant]
  3. CARDURAN NEO             (DOXAZOSIN MESILATE) [Concomitant]
  4. PLENDIL [Concomitant]
  5. OMEPRAZOLE [Concomitant]

REACTIONS (3)
  - PARAESTHESIA [None]
  - SOMNOLENCE [None]
  - SWELLING FACE [None]
